FAERS Safety Report 4530828-9 (Version None)
Quarter: 2004Q4

REPORT INFORMATION
  Report Type: 
  Country: None (occurrence: None)
  Receive Date: 20041216
  Receipt Date: 20041208
  Transmission Date: 20050328
  Serious: Yes (Death)
  Sender: FDA-Public Use
  Company Number: 04H-066-0282753-00

PATIENT

DRUGS (5)
  1. LEUCOVORIN CALCIUM [Suspect]
     Indication: CHEMOTHERAPY
     Dosage: 200 MG/M2, ONCE, INTRAVENOUS/DAY 1
     Route: 042
  2. CISPLATIN [Suspect]
     Indication: CHEMOTHERAPY
  3. FLUOROURACIL [Suspect]
     Indication: CHEMOTHERAPY
     Dosage: 400 MG/M2, ONCE, INTRAVENOUS/DAY 1 - DAY 2
     Route: 042
  4. SODIUM CHLORIDE [Concomitant]
  5. MANNITOL [Concomitant]

REACTIONS (2)
  - FEBRILE NEUTROPENIA [None]
  - SEPTIC SHOCK [None]
